FAERS Safety Report 24265342 (Version 3)
Quarter: 2025Q2

REPORT INFORMATION
  Report Type: Spontaneous
  Country: JP (occurrence: JP)
  Receive Date: 20240829
  Receipt Date: 20250620
  Transmission Date: 20250716
  Serious: No
  Sender: EISAI
  Company Number: JP-Eisai-202406540_LEN-HCC_P_1

PATIENT
  Sex: Male

DRUGS (4)
  1. LENVIMA [Suspect]
     Active Substance: LENVATINIB
     Indication: Hepatocellular carcinoma
  2. LENVIMA [Suspect]
     Active Substance: LENVATINIB
  3. LENVIMA [Suspect]
     Active Substance: LENVATINIB
  4. LENVIMA [Suspect]
     Active Substance: LENVATINIB
     Dates: end: 202502

REACTIONS (2)
  - Pyrexia [Recovered/Resolved]
  - Decreased appetite [Recovered/Resolved]

NARRATIVE: CASE EVENT DATE: 20240801
